FAERS Safety Report 13091101 (Version 1)
Quarter: 2017Q1

REPORT INFORMATION
  Report Type: Spontaneous
  Country: US (occurrence: US)
  Receive Date: 20170106
  Receipt Date: 20170106
  Transmission Date: 20170428
  Serious: No
  Sender: FDA-Public Use
  Company Number: US-DRREDDYS-USA/USA/15/0054598

PATIENT
  Age: 40 Year
  Sex: Male
  Weight: 77 kg

DRUGS (1)
  1. HABITROL [Suspect]
     Active Substance: NICOTINE
     Indication: SMOKING CESSATION THERAPY
     Route: 061
     Dates: start: 201511

REACTIONS (3)
  - Product quality issue [Unknown]
  - Nicotine dependence [Unknown]
  - Headache [Unknown]
